FAERS Safety Report 14272561 (Version 1)
Quarter: 2017Q4

REPORT INFORMATION
  Report Type: Spontaneous
  Country: US (occurrence: US)
  Receive Date: 20171211
  Receipt Date: 20171211
  Transmission Date: 20180321
  Serious: Yes (Disabling)
  Sender: FDA-Public Use
  Company Number: None

PATIENT
  Age: 43 Year
  Sex: Female
  Weight: 74.25 kg

DRUGS (5)
  1. DESLORATADINE. [Concomitant]
     Active Substance: DESLORATADINE
  2. FLONASE [Concomitant]
     Active Substance: FLUTICASONE PROPIONATE
  3. FLUOXETINE [Concomitant]
     Active Substance: FLUOXETINE HYDROCHLORIDE
  4. QVAR [Suspect]
     Active Substance: BECLOMETHASONE DIPROPIONATE
     Indication: ASTHMA
     Dosage: ?          QUANTITY:2 INHALATION(S);?
     Route: 055
     Dates: start: 20171020, end: 20171207
  5. STIOLTO RESPIMAT [Concomitant]
     Active Substance: OLODATEROL HYDROCHLORIDE\TIOTROPIUM BROMIDE MONOHYDRATE

REACTIONS (4)
  - Device issue [None]
  - Dyspnoea [None]
  - Device failure [None]
  - Incorrect dose administered by device [None]

NARRATIVE: CASE EVENT DATE: 20171208
